FAERS Safety Report 25723619 (Version 1)
Quarter: 2025Q3

REPORT INFORMATION
  Report Type: Spontaneous
  Country: US (occurrence: US)
  Receive Date: 20250825
  Receipt Date: 20250825
  Transmission Date: 20251021
  Serious: No
  Sender: GALDERMA
  Company Number: US-GALDERMA-US2025014182

PATIENT

DRUGS (1)
  1. NEMLUVIO [Suspect]
     Active Substance: NEMOLIZUMAB-ILTO
     Indication: Product used for unknown indication
     Route: 058
     Dates: start: 202507, end: 202507

REACTIONS (3)
  - Dry skin [Unknown]
  - Rash papular [Unknown]
  - Erythema [Unknown]

NARRATIVE: CASE EVENT DATE: 20250701
